FAERS Safety Report 4393043-8 (Version None)
Quarter: 2004Q3

REPORT INFORMATION
  Report Type: 
  Country: None (occurrence: None)
  Receive Date: 20040708
  Receipt Date: 20040628
  Transmission Date: 20050211
  Serious: Yes (Other)
  Sender: FDA-Public Use
  Company Number: PHFR2004GB02654

PATIENT
  Sex: Male

DRUGS (5)
  1. CARBAMAZEPINE [Suspect]
     Dosage: 300 MG, BID
     Route: 048
  2. MINOCYCLINE [Concomitant]
     Dosage: 100MG/DAY
     Route: 065
  3. OLANZAPINE [Concomitant]
     Route: 065
  4. MIRTAZAPINE [Concomitant]
     Dosage: 30MG/DAY
     Route: 065
  5. VENLAFAXINE [Concomitant]
     Route: 065
     Dates: end: 20040201

REACTIONS (1)
  - BLOOD SODIUM INCREASED [None]
